FAERS Safety Report 16792284 (Version 1)
Quarter: 2019Q3

REPORT INFORMATION
  Report Type: Spontaneous
  Country: BE (occurrence: BE)
  Receive Date: 20190910
  Receipt Date: 20190910
  Transmission Date: 20191005
  Serious: Yes (Death, Hospitalization)
  Sender: FDA-Public Use
  Company Number: BE-PFIZER INC-2019386476

PATIENT
  Age: 68 Year
  Sex: Female

DRUGS (1)
  1. MYLOTARG [Suspect]
     Active Substance: GEMTUZUMAB OZOGAMICIN
     Indication: ACUTE MYELOID LEUKAEMIA
     Dosage: 1 DF, CYCLIC: INDUCTION AT D1, D4, D7
     Dates: start: 201907

REACTIONS (5)
  - Cerebral haemorrhage [Fatal]
  - Sepsis [Unknown]
  - Haemorrhage [Unknown]
  - Encephalitis [Unknown]
  - Venoocclusive disease [Unknown]
